FAERS Safety Report 15280038 (Version 1)
Quarter: 2018Q3

REPORT INFORMATION
  Report Type: Spontaneous
  Country: US (occurrence: US)
  Receive Date: 20180730
  Receipt Date: 20180730
  Transmission Date: 20181010
  Serious: Yes (Disabling)
  Sender: FDA-Public Use
  Company Number: None

PATIENT
  Age: 56 Year
  Sex: Female
  Weight: 73.35 kg

DRUGS (1)
  1. PROLIA [Suspect]
     Active Substance: DENOSUMAB
     Indication: OSTEOPOROSIS
     Dosage: ?          OTHER FREQUENCY:EVERY 6 MINTHS;?
     Route: 058
     Dates: start: 20180717, end: 20180717

REACTIONS (6)
  - Bone pain [None]
  - Nausea [None]
  - Dyspnoea exertional [None]
  - Arthralgia [None]
  - Dehydration [None]
  - Fatigue [None]

NARRATIVE: CASE EVENT DATE: 20180727
